FAERS Safety Report 4672432-8 (Version None)
Quarter: 2005Q2

REPORT INFORMATION
  Report Type: 
  Country: None (occurrence: None)
  Receive Date: 20050524
  Receipt Date: 20050324
  Transmission Date: 20051028
  Serious: Yes (Other)
  Sender: FDA-Public Use
  Company Number: 200511655FR

PATIENT
  Age: 58 Year
  Sex: Male

DRUGS (14)
  1. ARAVA [Suspect]
     Indication: BK VIRUS INFECTION
     Route: 048
     Dates: start: 20041103, end: 20041231
  2. LASILIX [Suspect]
     Dates: start: 20041211
  3. NEORAL [Concomitant]
     Route: 048
     Dates: start: 20040816, end: 20041228
  4. BACTRIM [Concomitant]
     Route: 048
     Dates: start: 20040816
  5. MOPRAL [Concomitant]
     Route: 048
     Dates: start: 20040811, end: 20041101
  6. CORDARONE [Concomitant]
     Route: 048
     Dates: start: 20040817
  7. CORTANCYL [Concomitant]
     Route: 048
     Dates: start: 20040826
  8. FUNGIZONE [Concomitant]
     Route: 048
     Dates: start: 20041102, end: 20040101
  9. NEORECORMON [Concomitant]
     Dates: start: 20040828, end: 20041125
  10. CYMEVAN [Concomitant]
     Dates: start: 20040903, end: 20041101
  11. NEXIUM [Concomitant]
     Route: 048
     Dates: start: 20041105
  12. AMLOR [Concomitant]
     Route: 048
     Dates: start: 20041210
  13. EUPRESSYL [Concomitant]
     Route: 048
     Dates: start: 20041210
  14. COVERSYL [Concomitant]
     Route: 048
     Dates: start: 20041210

REACTIONS (5)
  - BLOOD CREATININE INCREASED [None]
  - CYTOMEGALOVIRUS VIRAEMIA [None]
  - RENAL FAILURE [None]
  - THROMBOCYTOPENIA [None]
  - VIRAEMIA [None]
